FAERS Safety Report 8168407-7 (Version None)
Quarter: 2012Q1

REPORT INFORMATION
  Report Type: 
  Country: None (occurrence: None)
  Receive Date: 20120227
  Receipt Date: 20120223
  Transmission Date: 20120608
  Serious: Yes (Hospitalization)
  Sender: FDA-Public Use
  Company Number: US-GILEAD-2012-0051135

PATIENT
  Sex: Female

DRUGS (3)
  1. REVATIO [Concomitant]
  2. LETAIRIS [Suspect]
     Indication: PORTOPULMONARY HYPERTENSION
     Dosage: 5 MG, UNK
     Route: 048
     Dates: start: 20100129
  3. LETAIRIS [Suspect]
     Indication: CONNECTIVE TISSUE DISORDER

REACTIONS (6)
  - FLUID OVERLOAD [None]
  - ACUTE RESPIRATORY DISTRESS SYNDROME [None]
  - CAROTID ARTERY DISEASE [None]
  - SIALOADENITIS [None]
  - RESPIRATORY DISTRESS [None]
  - INFECTION [None]
